FAERS Safety Report 11290921 (Version 2)
Quarter: 2015Q3

REPORT INFORMATION
  Report Type: Spontaneous
  Country: GB (occurrence: None)
  Receive Date: 20150720
  Receipt Date: 20150803
  Transmission Date: 20151125
  Serious: Yes (Other)
  Sender: FDA-Public Use
  Company Number: ADR-2015-01354

PATIENT
  Sex: Male

DRUGS (1)
  1. COMPOUNDED BACLOFEN INTRATHECAL [Suspect]
     Active Substance: BACLOFEN
     Indication: MUSCLE SPASTICITY

REACTIONS (10)
  - Medical device site haemorrhage [None]
  - Wound [None]
  - Medical device site oedema [None]
  - Medical device site haematoma [None]
  - Incorrect dose administered by device [None]
  - Post procedural haematoma [None]
  - Device breakage [None]
  - Device dislocation [None]
  - Device inversion [None]
  - Device occlusion [None]
